FAERS Safety Report 12176468 (Version 1)
Quarter: 2016Q1

REPORT INFORMATION
  Report Type: Spontaneous
  Country: US (occurrence: US)
  Receive Date: 20160314
  Receipt Date: 20160314
  Transmission Date: 20160526
  Serious: Yes (Other)
  Sender: FDA-Public Use
  Company Number: US-AKORN PHARMACEUTICALS-2015AKN00377

PATIENT
  Age: 73 Year
  Sex: Male

DRUGS (20)
  1. AUGMENTIN [Concomitant]
     Active Substance: AMOXICILLIN\CLAVULANATE POTASSIUM
     Dosage: 1 TABLETS, 2X/DAY
  2. FERROUS SULFATE [Concomitant]
     Active Substance: FERROUS SULFATE\FERROUS SULFATE, DRIED
  3. HYDROCHLOROTHIAZIDE. [Concomitant]
     Active Substance: HYDROCHLOROTHIAZIDE
  4. LABETALOL HYDROCHLORIDE. [Concomitant]
     Active Substance: LABETALOL HYDROCHLORIDE
  5. METAMUCIL [Concomitant]
     Active Substance: PLANTAGO SEED
  6. SILVADENE [Concomitant]
     Active Substance: SILVER SULFADIAZINE
     Dosage: 1 DOSAGE UNITS, 1X/DAY
     Route: 061
  7. ADVIL [Concomitant]
     Active Substance: IBUPROFEN
  8. METAXALONE. [Concomitant]
     Active Substance: METAXALONE
  9. RAPAFLO [Concomitant]
     Active Substance: SILODOSIN
  10. OMEPRAZOLE. [Concomitant]
     Active Substance: OMEPRAZOLE
  11. ASPIRIN. [Concomitant]
     Active Substance: ASPIRIN
  12. CLONIDINE HYDROCHLORIDE. [Concomitant]
     Active Substance: CLONIDINE HYDROCHLORIDE
  13. CRESTOR [Concomitant]
     Active Substance: ROSUVASTATIN CALCIUM
  14. HUMIRA [Concomitant]
     Active Substance: ADALIMUMAB
     Dosage: 2 DOSAGE UNITS, ONCE
     Route: 058
  15. VITAMIN D [Concomitant]
     Active Substance: CHOLECALCIFEROL
  16. MYORISAN [Suspect]
     Active Substance: ISOTRETINOIN
     Indication: HIDRADENITIS
     Dosage: 40 MG, 1X/DAY
     Dates: start: 20140127, end: 20150623
  17. HUMIRA [Concomitant]
     Active Substance: ADALIMUMAB
     Dosage: 1 DOSAGE UNITS, 2X/MONTH
  18. LOSARTAN POTASSIUM. [Concomitant]
     Active Substance: LOSARTAN POTASSIUM
  19. AMOXICILLIN. [Concomitant]
     Active Substance: AMOXICILLIN
  20. NAPROXEN. [Concomitant]
     Active Substance: NAPROXEN

REACTIONS (3)
  - Anaemia [Unknown]
  - Lethargy [Unknown]
  - Off label use [Recovered/Resolved]

NARRATIVE: CASE EVENT DATE: 201401
